FAERS Safety Report 7304655-3 (Version None)
Quarter: 2011Q1

REPORT INFORMATION
  Report Type: 
  Country: None (occurrence: None)
  Receive Date: 20110222
  Receipt Date: 20110218
  Transmission Date: 20110831
  Serious: Yes (Death, Other)
  Sender: FDA-Public Use
  Company Number: PHHO2011ZM01755

PATIENT
  Sex: Female

DRUGS (1)
  1. ARTEMETHER,BENFLUMETOL [Suspect]
     Indication: MALARIA
     Route: 064

REACTIONS (7)
  - NASAL FLARING [None]
  - RALES [None]
  - ANURIA [None]
  - DRUG EXPOSURE DURING PREGNANCY [None]
  - CONSTIPATION [None]
  - RESPIRATORY DISTRESS [None]
  - DYSPNOEA [None]
